FAERS Safety Report 10171381 (Version 1)
Quarter: 2014Q2

REPORT INFORMATION
  Report Type: Spontaneous
  Country: US (occurrence: US)
  Receive Date: 20140514
  Receipt Date: 20140514
  Transmission Date: 20141212
  Serious: Yes (Death)
  Sender: FDA-Public Use
  Company Number: US-ABBVIE-14P-163-1236063-00

PATIENT
  Age: 56 Year
  Sex: Male
  Weight: 80.81 kg

DRUGS (5)
  1. ANDROGEL [Suspect]
     Indication: HYPOGONADISM
     Route: 061
  2. ANDROGEL [Suspect]
     Dosage: 2 PUMPS ONCE A DAY
     Route: 061
     Dates: end: 20140416
  3. BENICAR HCT [Concomitant]
     Indication: PRODUCT USED FOR UNKNOWN INDICATION
     Dosage: 20/12.5 MG
     Route: 048
  4. SIMVASTATIN [Concomitant]
     Indication: PRODUCT USED FOR UNKNOWN INDICATION
     Dosage: AT HOUR OF SLEEP
     Route: 048
  5. JANUMET [Concomitant]
     Indication: PRODUCT USED FOR UNKNOWN INDICATION
     Dosage: 50/1000 MG WITH MEALS
     Route: 048

REACTIONS (4)
  - Myocardial infarction [Fatal]
  - Malaise [Fatal]
  - Cardiac arrest [Fatal]
  - Blood testosterone decreased [Fatal]
